FAERS Safety Report 20455849 (Version 2)
Quarter: 2022Q1

REPORT INFORMATION
  Report Type: Spontaneous
  Country: US (occurrence: US)
  Receive Date: 20220210
  Receipt Date: 20220315
  Transmission Date: 20220423
  Serious: Yes (Death, Hospitalization)
  Sender: FDA-Public Use
  Company Number: US-AMNEAL PHARMACEUTICALS-2022-AMRX-00252

PATIENT
  Age: 86 Year
  Sex: Male

DRUGS (1)
  1. RYTARY [Suspect]
     Active Substance: CARBIDOPA\LEVODOPA
     Indication: Parkinson^s disease
     Dosage: 13 CAPSULES, DAILY
     Route: 048
     Dates: start: 20200228

REACTIONS (2)
  - COVID-19 pneumonia [Fatal]
  - Parkinsonism [Fatal]

NARRATIVE: CASE EVENT DATE: 20220101
